FAERS Safety Report 6557201-6 (Version None)
Quarter: 2010Q1

REPORT INFORMATION
  Report Type: 
  Country: None (occurrence: None)
  Receive Date: 20100127
  Receipt Date: 20100127
  Transmission Date: 20100710
  Serious: Yes (Hospitalization)
  Sender: FDA-Public Use
  Company Number: None

PATIENT
  Age: 92 Year
  Sex: Male

DRUGS (1)
  1. METRONIDAZOLE [Suspect]
     Indication: CLOSTRIDIUM DIFFICILE COLITIS
     Dosage: 500 MG TID PO
     Route: 048
     Dates: start: 20100104, end: 20100105

REACTIONS (1)
  - RASH [None]
